FAERS Safety Report 24731501 (Version 2)
Quarter: 2025Q3

REPORT INFORMATION
  Report Type: Spontaneous
  Country: EU (occurrence: EU)
  Receive Date: 20241213
  Receipt Date: 20250809
  Transmission Date: 20251021
  Serious: Yes (Death, Other)
  Sender: ALEXION PHARMACEUTICALS
  Company Number: None

PATIENT
  Age: 1 Year
  Sex: Female
  Weight: 7.5 kg

DRUGS (7)
  1. NIRSEVIMAB [Suspect]
     Active Substance: NIRSEVIMAB
  2. INFLUVAC TETRA [Suspect]
     Active Substance: INFLUENZA VIRUS VACCINE QUADRIVALENT TYPE A+B
     Indication: Influenza immunisation
  3. Bosentano zentiva [Concomitant]
  4. SILDENAFIL [Concomitant]
     Active Substance: SILDENAFIL
     Route: 065
  5. CAPTOPRIL [Concomitant]
     Active Substance: CAPTOPRIL
  6. FUROSEMIDE [Concomitant]
     Active Substance: FUROSEMIDE
     Route: 065
  7. SPIRONOLACTONE [Concomitant]
     Active Substance: SPIRONOLACTONE

REACTIONS (1)
  - Cardio-respiratory arrest [Fatal]

NARRATIVE: CASE EVENT DATE: 20241021
